FAERS Safety Report 8237618-4 (Version None)
Quarter: 2012Q1

REPORT INFORMATION
  Report Type: 
  Country: None (occurrence: None)
  Receive Date: 20120327
  Receipt Date: 20120320
  Transmission Date: 20120608
  Serious: Yes (Other)
  Sender: FDA-Public Use
  Company Number: US-US-EMD SERONO, INC.-7121093

PATIENT
  Sex: Male

DRUGS (2)
  1. PROZAC [Concomitant]
     Indication: PRODUCT USED FOR UNKNOWN INDICATION
  2. REBIF [Suspect]
     Indication: PRODUCT USED FOR UNKNOWN INDICATION
     Route: 058
     Dates: start: 20110412

REACTIONS (3)
  - INJECTION SITE HAEMATOMA [None]
  - HYPERPARATHYROIDISM [None]
  - INJECTION SITE PAIN [None]
